FAERS Safety Report 25221139 (Version 1)
Quarter: 2025Q2

REPORT INFORMATION
  Report Type: Spontaneous
  Country: US (occurrence: US)
  Receive Date: 20250421
  Receipt Date: 20250421
  Transmission Date: 20250716
  Serious: Yes (Other)
  Sender: SANDOZ
  Company Number: US-PFIZER INC-202500074834

PATIENT
  Sex: Male

DRUGS (9)
  1. BICALUTAMIDE [Suspect]
     Active Substance: BICALUTAMIDE
     Indication: Salivary gland cancer recurrent
     Route: 065
  2. LEUPROLIDE ACETATE [Suspect]
     Active Substance: LEUPROLIDE ACETATE
     Indication: Salivary gland cancer recurrent
     Route: 065
  3. PEMBROLIZUMAB [Suspect]
     Active Substance: PEMBROLIZUMAB
     Indication: Salivary gland cancer recurrent
     Route: 065
  4. PERTUZUMAB [Suspect]
     Active Substance: PERTUZUMAB
     Indication: Salivary gland cancer recurrent
     Route: 065
  5. TUKYSA [Suspect]
     Active Substance: TUCATINIB
     Indication: Salivary gland cancer recurrent
     Dosage: UNK, BID, 2 CAPS TWICE DAILY
     Route: 065
  6. CAPECITABINE [Concomitant]
     Active Substance: CAPECITABINE
     Indication: Salivary gland cancer recurrent
     Route: 065
  7. TRASTUZUMAB [Concomitant]
     Active Substance: TRASTUZUMAB
     Indication: Salivary gland cancer recurrent
     Route: 065
  8. TRASTUZUMAB DERUXTECAN [Concomitant]
     Active Substance: TRASTUZUMAB DERUXTECAN
     Indication: Salivary gland cancer recurrent
     Route: 065
  9. TUCATINIB [Concomitant]
     Active Substance: TUCATINIB
     Indication: Salivary gland cancer recurrent
     Route: 065

REACTIONS (3)
  - Salivary gland cancer recurrent [Unknown]
  - Disease progression [Unknown]
  - Off label use [Unknown]
